FAERS Safety Report 7441560-6 (Version None)
Quarter: 2011Q2

REPORT INFORMATION
  Report Type: 
  Country: None (occurrence: None)
  Receive Date: 20110425
  Receipt Date: 20110425
  Transmission Date: 20111010
  Serious: No
  Sender: FDA-Public Use
  Company Number: None

PATIENT
  Age: 36 Year
  Sex: Female
  Weight: 52.1637 kg

DRUGS (1)
  1. SORIATANE [Suspect]
     Indication: HIDRADENITIS
     Dosage: 50 MG / DAY 1 PO
     Route: 048
     Dates: start: 20080601, end: 20090301

REACTIONS (8)
  - MUSCULOSKELETAL STIFFNESS [None]
  - ABASIA [None]
  - FOOT DEFORMITY [None]
  - LOSS OF EMPLOYMENT [None]
  - BACK PAIN [None]
  - MUSCLE SPASMS [None]
  - BALANCE DISORDER [None]
  - DYSSTASIA [None]
